FAERS Safety Report 9812320 (Version 1)
Quarter: 2014Q1

REPORT INFORMATION
  Report Type: Spontaneous
  Country: US (occurrence: US)
  Receive Date: 20140113
  Receipt Date: 20140113
  Transmission Date: 20141002
  Serious: No
  Sender: FDA-Public Use
  Company Number: US-009507513-1401USA002914

PATIENT
  Sex: 0
  Weight: 54.42 kg

DRUGS (2)
  1. NEXPLANON [Suspect]
     Dosage: 68 MG/ONE ROD EVERY 3 YEAR
     Route: 059
     Dates: start: 20140107, end: 20140107
  2. NEXPLANON [Suspect]
     Dosage: 68 MG/ONE ROD EVERY 3 YEAR
     Route: 059
     Dates: start: 20140107

REACTIONS (4)
  - Device difficult to use [Unknown]
  - Medical device complication [Unknown]
  - Product quality issue [Unknown]
  - No adverse event [Unknown]
